FAERS Safety Report 19200707 (Version 1)
Quarter: 2021Q2

REPORT INFORMATION
  Report Type: Spontaneous
  Country: ES (occurrence: ES)
  Receive Date: 20210430
  Receipt Date: 20210430
  Transmission Date: 20210717
  Serious: Yes (Other)
  Sender: FDA-Public Use
  Company Number: ES-ACCORD-224009

PATIENT
  Age: 73 Year
  Sex: Female
  Weight: 71 kg

DRUGS (1)
  1. CARBOPLATIN. [Suspect]
     Active Substance: CARBOPLATIN
     Indication: UTERINE CANCER
     Dosage: 10 MG / ML CONCENTRATE FOR SOLUTION FOR INFUSION EFG, 1?VIAL OF 45 ML, EVERY 21 DAYS
     Route: 041
     Dates: start: 20210210, end: 20210210

REACTIONS (4)
  - Pruritus [Recovered/Resolved]
  - Off label use [Unknown]
  - Flushing [Recovered/Resolved]
  - Throat irritation [Recovered/Resolved]

NARRATIVE: CASE EVENT DATE: 20210210
